FAERS Safety Report 7104250-5 (Version None)
Quarter: 2010Q4

REPORT INFORMATION
  Report Type: 
  Country: None (occurrence: None)
  Receive Date: 20101115
  Receipt Date: 20100613
  Transmission Date: 20110411
  Serious: Yes (Hospitalization)
  Sender: FDA-Public Use
  Company Number: US-ALLERGAN-1007737US

PATIENT
  Age: 31 Year
  Sex: Female

DRUGS (4)
  1. BOTOX COSMETIC [Suspect]
     Indication: SKIN WRINKLING
     Dosage: 44 UNITS, SINGLE
     Route: 030
     Dates: start: 20100526, end: 20100526
  2. YAZ [Concomitant]
  3. RESTYLANE [Concomitant]
  4. LEVOTHYROXINE [Concomitant]

REACTIONS (1)
  - MYOCARDIAL INFARCTION [None]
